FAERS Safety Report 15789321 (Version 1)
Quarter: 2019Q1

REPORT INFORMATION
  Report Type: Spontaneous
  Country: US (occurrence: US)
  Receive Date: 20190103
  Receipt Date: 20190103
  Transmission Date: 20190417
  Serious: Yes (Hospitalization)
  Sender: FDA-Public Use
  Company Number: None

PATIENT
  Sex: Male

DRUGS (22)
  1. RANITIDINE. [Concomitant]
     Active Substance: RANITIDINE
  2. A-HYDROCORT [Concomitant]
     Active Substance: HYDROCORTISONE SODIUM SUCCINATE
  3. LANSOPRAZOLE. [Concomitant]
     Active Substance: LANSOPRAZOLE
  4. CREON/QVAR [Concomitant]
  5. AQUADEKS [Concomitant]
     Active Substance: MINERALS\VITAMINS
  6. CETIRIZINE [Concomitant]
     Active Substance: CETIRIZINE HYDROCHLORIDE
  7. URSODIOL. [Concomitant]
     Active Substance: URSODIOL
  8. CIPRODEX [Concomitant]
     Active Substance: CIPROFLOXACIN HYDROCHLORIDE\DEXAMETHASONE
  9. ALBUTEROL. [Concomitant]
     Active Substance: ALBUTEROL
  10. PULMOZYME [Concomitant]
     Active Substance: DORNASE ALFA
  11. IPRATROPIUM [Concomitant]
     Active Substance: IPRATROPIUM
  12. SYMBICORT [Concomitant]
     Active Substance: BUDESONIDE\FORMOTEROL FUMARATE DIHYDRATE
  13. OMNITROPE [Suspect]
     Active Substance: SOMATROPIN
     Indication: CYSTIC FIBROSIS
     Route: 058
     Dates: start: 20181114
  14. CAYSTON [Concomitant]
     Active Substance: AZTREONAM
  15. PREDNISONE. [Concomitant]
     Active Substance: PREDNISONE
  16. SMZ/TMP [Concomitant]
     Active Substance: SULFAMETHOXAZOLE\TRIMETHOPRIM
  17. FLUTICASONE. [Concomitant]
     Active Substance: FLUTICASONE
  18. PROVENTIL [Concomitant]
     Active Substance: ALBUTEROL
  19. MOXIFLOXACIN. [Concomitant]
     Active Substance: MOXIFLOXACIN
  20. DEXMETHYLPHE [Concomitant]
  21. CLINDAMYCIN. [Concomitant]
     Active Substance: CLINDAMYCIN
  22. MINOCYCLINE [Concomitant]
     Active Substance: MINOCYCLINE\MINOCYCLINE HYDROCHLORIDE

REACTIONS (1)
  - Hospitalisation [None]
